FAERS Safety Report 11265653 (Version 3)
Quarter: 2015Q4

REPORT INFORMATION
  Report Type: Spontaneous
  Country: US (occurrence: US)
  Receive Date: 20150713
  Receipt Date: 20151119
  Transmission Date: 20160304
  Serious: Yes (Hospitalization, Other)
  Sender: FDA-Public Use
  Company Number: US-PFIZER INC-2015229219

PATIENT
  Age: 59 Year
  Sex: Female
  Weight: 76.19 kg

DRUGS (1)
  1. REVATIO [Suspect]
     Active Substance: SILDENAFIL CITRATE
     Indication: PULMONARY HYPERTENSION
     Dosage: 20 MG, 3X/DAY (TAKE DOSES AT LEAST 6 HOURS APART)
     Route: 048
     Dates: start: 2007

REACTIONS (2)
  - Atrial fibrillation [Unknown]
  - Malaise [Unknown]
